FAERS Safety Report 6727301-6 (Version None)
Quarter: 2010Q2

REPORT INFORMATION
  Report Type: 
  Country: None (occurrence: None)
  Receive Date: 20100517
  Receipt Date: 20100510
  Transmission Date: 20101027
  Serious: Yes (Hospitalization)
  Sender: FDA-Public Use
  Company Number: US-JNJFOC-20100503626

PATIENT
  Sex: Female
  Weight: 63.5 kg

DRUGS (3)
  1. TOPAMAX [Suspect]
     Indication: HEADACHE
     Dosage: 100MG IN TOTAL
     Route: 048
  2. TOPAMAX [Suspect]
     Route: 048
  3. UNKNOWN MEDICATION [Concomitant]

REACTIONS (7)
  - COELIAC DISEASE [None]
  - DIZZINESS [None]
  - FATIGUE [None]
  - FEELING ABNORMAL [None]
  - PULMONARY THROMBOSIS [None]
  - THROMBOSIS [None]
  - WEIGHT DECREASED [None]
